FAERS Safety Report 4336171-5 (Version None)
Quarter: 2004Q1

REPORT INFORMATION
  Report Type: 
  Country: None (occurrence: None)
  Receive Date: 20040329
  Receipt Date: 20040217
  Transmission Date: 20041129
  Serious: No
  Sender: FDA-Public Use
  Company Number: USA040258162

PATIENT
  Age: 12 Year
  Sex: Male
  Weight: 50 kg

DRUGS (1)
  1. STRATTERA [Suspect]
     Dosage: 40 MG/IN THE MORNING
     Dates: start: 20040127

REACTIONS (8)
  - DIZZINESS [None]
  - DYSPEPSIA [None]
  - FATIGUE [None]
  - HEADACHE [None]
  - HEART RATE IRREGULAR [None]
  - HYPOAESTHESIA [None]
  - LOSS OF CONSCIOUSNESS [None]
  - NAUSEA [None]
